FAERS Safety Report 5148126-1 (Version None)
Quarter: 2006Q4

REPORT INFORMATION
  Report Type: 
  Country: None (occurrence: None)
  Receive Date: 20061110
  Receipt Date: 20061006
  Transmission Date: 20070319
  Serious: Yes (Death, Hospitalization)
  Sender: FDA-Public Use
  Company Number: FR-ROCHE-466256

PATIENT
  Age: 57 Year
  Sex: Female
  Weight: 90 kg

DRUGS (12)
  1. NICARDIPINE HYDROCHLORIDE [Suspect]
     Indication: HYPERTENSION
     Route: 048
     Dates: start: 20060825, end: 20060825
  2. NICARDIPINE HYDROCHLORIDE [Suspect]
     Route: 048
  3. ACUITEL [Suspect]
     Indication: DRUG USE FOR UNKNOWN INDICATION
     Route: 048
     Dates: start: 20060825, end: 20060825
  4. ACUITEL [Suspect]
     Route: 048
  5. LEVOTHYROXINE SODIUM [Suspect]
     Indication: HYPOTHYROIDISM
     Route: 048
     Dates: start: 20060825, end: 20060825
  6. LEVOTHYROXINE SODIUM [Suspect]
     Route: 048
  7. ATARAX [Suspect]
     Indication: DEPRESSION
     Route: 048
     Dates: start: 20060825, end: 20060825
  8. ATARAX [Suspect]
     Route: 048
  9. SEROPLEX [Suspect]
     Indication: DEPRESSION
     Route: 048
     Dates: start: 20060825, end: 20060825
  10. SEROPLEX [Suspect]
     Route: 048
  11. DEDROGYL [Concomitant]
  12. VITAMIN D3 [Concomitant]

REACTIONS (2)
  - INTENTIONAL OVERDOSE [None]
  - SHOCK [None]
